FAERS Safety Report 7806840-0 (Version None)
Quarter: 2011Q4

REPORT INFORMATION
  Report Type: 
  Country: None (occurrence: None)
  Receive Date: 20111011
  Receipt Date: 20111004
  Transmission Date: 20120403
  Serious: Yes (Hospitalization)
  Sender: FDA-Public Use
  Company Number: NL-TEVA-304214ISR

PATIENT
  Sex: Male
  Weight: 98 kg

DRUGS (7)
  1. METFORMIN HCL [Suspect]
     Dosage: 1500 MILLIGRAM;
     Dates: start: 20011203
  2. EMCOR DECO TABLET 2.5MG [Concomitant]
     Dosage: 1 DOSAGE FORMS;
  3. ASCAL CARDIO SACHET 100 MG [Concomitant]
     Dosage: 1 DOSAGE FORMS;
  4. EZETROL TABLET 10MG [Concomitant]
     Dosage: 10 MILLIGRAM;
  5. SELEKTINE TABLET 20MG [Concomitant]
     Dosage: 2 DOSAGE FORMS;
  6. AMARYL TABLET 1MG [Concomitant]
     Dosage: 1 DOSAGE FORMS;
  7. MONO CEDOCARD RETARD CAPSULE MGA 25MG [Concomitant]
     Dosage: 1 DOSAGE FORMS;

REACTIONS (1)
  - CALCINOSIS [None]
